FAERS Safety Report 7153777-9 (Version None)
Quarter: 2010Q4

REPORT INFORMATION
  Report Type: 
  Country: None (occurrence: None)
  Receive Date: 20101213
  Receipt Date: 20100301
  Transmission Date: 20110411
  Serious: No
  Sender: FDA-Public Use
  Company Number: US-ABBOTT-10P-163-0629579-00

PATIENT
  Sex: Male
  Weight: 120.31 kg

DRUGS (6)
  1. MERIDIA [Suspect]
     Indication: WEIGHT CONTROL
     Dates: start: 20100101
  2. SERTRALINE [Concomitant]
     Indication: POST-TRAUMATIC STRESS DISORDER
  3. SERTRALINE [Concomitant]
     Indication: DEPRESSION
  4. LIPITOR [Concomitant]
     Indication: HYPERLIPIDAEMIA
  5. ATENOLOL [Concomitant]
     Indication: HYPERTENSION
  6. LOVOXYL [Concomitant]
     Indication: HYPOTHYROIDISM

REACTIONS (7)
  - GAIT DISTURBANCE [None]
  - HYPERHIDROSIS [None]
  - HYPOAESTHESIA [None]
  - MUSCLE SPASMS [None]
  - MUSCULAR WEAKNESS [None]
  - MUSCULOSKELETAL DISCOMFORT [None]
  - PNEUMONIA [None]
